FAERS Safety Report 5029103-8 (Version None)
Quarter: 2006Q2

REPORT INFORMATION
  Report Type: 
  Country: None (occurrence: None)
  Receive Date: 20060613
  Receipt Date: 20060531
  Transmission Date: 20061013
  Serious: Yes (Other)
  Sender: FDA-Public Use
  Company Number: TCI2006A00758

PATIENT
  Age: 43 Year
  Sex: Female

DRUGS (1)
  1. LEUPLIN FOR INJECTION KIT3.75 [Suspect]
     Indication: ENDOMETRIOSIS
     Dosage: 3.75 MG (3.75 MG, 1 IN 28 D) SUBCUTANEOUS
     Route: 058
     Dates: start: 20051021, end: 20051111

REACTIONS (1)
  - ASCITES [None]
